FAERS Safety Report 8693853 (Version 3)
Quarter: 2012Q4

REPORT INFORMATION
  Report Type: 
  Country: US (occurrence: US)
  Receive Date: 20120731
  Receipt Date: 20121024
  Transmission Date: 20130627
  Serious: Yes (Hospitalization)
  Sender: FDA-Public Use
  Company Number: US-JNJFOC-20120714099

PATIENT
  Sex: Male
  Weight: 78.02 kg

DRUGS (3)
  1. ZYTIGA [Suspect]
     Indication: PROSTATE CANCER METASTATIC
     Route: 048
     Dates: start: 201203
  2. VANCOMYCIN [Concomitant]
     Indication: INFECTION
     Route: 065
     Dates: start: 2012, end: 2012
  3. DAPTOMYCIN [Concomitant]
     Indication: INFECTION
     Route: 065

REACTIONS (6)
  - Joint destruction [Recovered/Resolved]
  - Abasia [Unknown]
  - Cellulitis [Recovered/Resolved]
  - Post procedural infection [Not Recovered/Not Resolved]
  - Infection [Not Recovered/Not Resolved]
  - Drug administration error [Not Recovered/Not Resolved]
